FAERS Safety Report 19425190 (Version 2)
Quarter: 2022Q2

REPORT INFORMATION
  Report Type: Report from Study
  Country: CA (occurrence: CA)
  Receive Date: 20210616
  Receipt Date: 20220413
  Transmission Date: 20220721
  Serious: Yes (Other)
  Sender: FDA-Public Use
  Company Number: CA-ABBVIE-21K-028-3949902-00

PATIENT
  Age: 62 Year
  Weight: 52.210 kg

DRUGS (3)
  1. RINVOQ [Suspect]
     Active Substance: UPADACITINIB
     Indication: Rheumatoid arthritis
     Route: 048
     Dates: start: 20201209, end: 20210225
  2. RINVOQ [Suspect]
     Active Substance: UPADACITINIB
     Route: 048
     Dates: start: 20210225, end: 20210427
  3. RINVOQ [Suspect]
     Active Substance: UPADACITINIB
     Route: 048
     Dates: start: 20210429

REACTIONS (2)
  - Rotator cuff repair [Recovered/Resolved]
  - Muscle operation [Recovered/Resolved]

NARRATIVE: CASE EVENT DATE: 20210304
